FAERS Safety Report 9255231 (Version 1)
Quarter: 2013Q2

REPORT INFORMATION
  Report Type: Spontaneous
  Country: US (occurrence: US)
  Receive Date: 20130425
  Receipt Date: 20130425
  Transmission Date: 20140414
  Serious: Yes (Other)
  Sender: FDA-Public Use
  Company Number: US-MYLANLABS-2013S1006565

PATIENT
  Age: 68 Year
  Sex: Male
  Weight: 86.18 kg

DRUGS (3)
  1. VORICONAZOLE TABLETS [Suspect]
     Indication: FUNGAL INFECTION
     Route: 048
     Dates: start: 20130214, end: 20130304
  2. VORICONAZOLE TABLETS [Suspect]
     Indication: FUNGAL INFECTION
     Route: 048
     Dates: start: 20130305, end: 20130311
  3. SYNTHROID [Concomitant]
     Indication: AUTOIMMUNE THYROIDITIS
     Route: 048

REACTIONS (1)
  - Psoriasis [Recovered/Resolved]
